FAERS Safety Report 6432416-6 (Version None)
Quarter: 2009Q4

REPORT INFORMATION
  Report Type: 
  Country: None (occurrence: None)
  Receive Date: 20091109
  Receipt Date: 20091103
  Transmission Date: 20100525
  Serious: Yes (Other)
  Sender: FDA-Public Use
  Company Number: CHPA2009US21491

PATIENT
  Age: 74 Year
  Sex: Female

DRUGS (2)
  1. BENEFIBER W/ WHEAT DEXTRIN (NCH) [Suspect]
     Indication: BOWEL MOVEMENT IRREGULARITY
     Dosage: 2 TSP, TID
     Route: 048
  2. MIRALAX [Suspect]
     Dosage: UNK, UNK
     Route: 048

REACTIONS (5)
  - DRUG DEPENDENCE [None]
  - DRUG INEFFECTIVE FOR UNAPPROVED INDICATION [None]
  - FLANK PAIN [None]
  - RENAL DISORDER [None]
  - WRONG TECHNIQUE IN DRUG USAGE PROCESS [None]
